FAERS Safety Report 4782832-3 (Version None)
Quarter: 2005Q3

REPORT INFORMATION
  Report Type: 
  Country: None (occurrence: None)
  Receive Date: 20050914
  Receipt Date: 20050607
  Transmission Date: 20060218
  Serious: Yes (Death, Hospitalization)
  Sender: FDA-Public Use
  Company Number: 163-20785-05060111

PATIENT
  Age: 7 Month
  Sex: Female

DRUGS (1)
  1. THALOMID [Suspect]
     Indication: ENDOTHELIAL DYSFUNCTION
     Dosage: 150 MG, DAILY, ORAL  (THERAPY DATES:  02/--/05 - APPROXIMATELY MAY05)
     Route: 048
     Dates: start: 20050201, end: 20050501

REACTIONS (3)
  - DEATH [None]
  - DISEASE PROGRESSION [None]
  - SOMNOLENCE [None]
